FAERS Safety Report 5268074-6 (Version None)
Quarter: 2007Q1

REPORT INFORMATION
  Report Type: 
  Country: None (occurrence: None)
  Receive Date: 20070319
  Receipt Date: 20070308
  Transmission Date: 20070707
  Serious: Yes (Other)
  Sender: FDA-Public Use
  Company Number: US-ELI_LILLY_AND_COMPANY-US200609000317

PATIENT
  Age: 46 Year
  Sex: Male
  Weight: 97.052 kg

DRUGS (6)
  1. ZYPREXA [Suspect]
     Dosage: 2.5 MG, UNK
     Route: 048
     Dates: start: 20010101
  2. ZYPREXA [Suspect]
     Dosage: 15 MG, UNK
     Route: 048
     Dates: end: 20041201
  3. WELLBUTRIN [Concomitant]
     Route: 048
     Dates: start: 20010101, end: 20020101
  4. ZOLOFT [Concomitant]
     Route: 048
     Dates: start: 20020101
  5. ABILIFY [Concomitant]
     Route: 048
     Dates: start: 20050201
  6. GEODON [Concomitant]
     Route: 048
     Dates: start: 20050101, end: 20060101

REACTIONS (5)
  - BLOOD CHOLESTEROL ABNORMAL [None]
  - BLOOD TRIGLYCERIDES INCREASED [None]
  - DIABETES MELLITUS [None]
  - HEPATITIS VIRAL [None]
  - HYPERGLYCAEMIA [None]
